FAERS Safety Report 9977713 (Version 1)
Quarter: 2014Q1

REPORT INFORMATION
  Report Type: Report from Study
  Country: US (occurrence: US)
  Receive Date: 20140306
  Receipt Date: 20140306
  Transmission Date: 20141002
  Serious: No
  Sender: FDA-Public Use
  Company Number: US-ABBVIE-13P-163-1163405-00

PATIENT
  Sex: Male
  Weight: 63.56 kg

DRUGS (7)
  1. HUMIRA [Suspect]
     Indication: CROHN^S DISEASE
     Dates: start: 200908
  2. HUMIRA [Suspect]
     Indication: CROHN^S DISEASE
     Dates: end: 201307
  3. HUMIRA [Suspect]
     Dates: start: 201307
  4. VITAMINS [Concomitant]
     Indication: VITAMIN SUPPLEMENTATION
  5. VITAMINS [Concomitant]
     Indication: KINESITHERAPY
  6. PROTEIN SUPPLEMENTS [Concomitant]
     Indication: MEDICAL DIET
  7. PROTEIN SUPPLEMENTS [Concomitant]
     Indication: KINESITHERAPY

REACTIONS (6)
  - Colitis [Not Recovered/Not Resolved]
  - Anal inflammation [Not Recovered/Not Resolved]
  - Crohn^s disease [Not Recovered/Not Resolved]
  - Injection site pain [Not Recovered/Not Resolved]
  - Abdominal pain [Recovered/Resolved]
  - Injection site pain [Recovered/Resolved]
